FAERS Safety Report 7246752-7 (Version None)
Quarter: 2011Q1

REPORT INFORMATION
  Report Type: 
  Country: None (occurrence: None)
  Receive Date: 20110127
  Receipt Date: 20110118
  Transmission Date: 20110831
  Serious: Yes (Hospitalization)
  Sender: FDA-Public Use
  Company Number: FR-JNJFOC-20110104733

PATIENT
  Age: 82 Year
  Sex: Female

DRUGS (1)
  1. TAVANIC [Suspect]
     Indication: PRODUCT USED FOR UNKNOWN INDICATION
     Route: 048

REACTIONS (3)
  - TREMOR [None]
  - MUSCLE SPASMS [None]
  - ASTHENIA [None]
